FAERS Safety Report 8170825-8 (Version None)
Quarter: 2012Q1

REPORT INFORMATION
  Report Type: 
  Country: None (occurrence: None)
  Receive Date: 20120104
  Receipt Date: 20111207
  Transmission Date: 20120608
  Serious: No
  Sender: FDA-Public Use
  Company Number: 2011HGS-002932

PATIENT
  Sex: Female
  Weight: 63.5036 kg

DRUGS (9)
  1. BENLYSTA [Suspect]
     Indication: SYSTEMIC LUPUS ERYTHEMATOSUS
     Dosage: 1 IN 28 D, INTRAVENOUS DRIP
     Route: 041
     Dates: start: 20110825
  2. PREDNISONE [Concomitant]
  3. PREVACID(LANSOPRAZOLE) (LANSOPRAZOLE) [Concomitant]
  4. PLAVIX [Concomitant]
  5. DIOVAN [Concomitant]
  6. LISINOPRIL [Concomitant]
  7. METOPROLOL SUCCINATE [Concomitant]
  8. PLAQUENIL(HYDROXYCHLOROQUINE SULFATE) (HYDROXYCHLOROQUINE SULFATE) [Concomitant]
  9. FOLIC ACID [Concomitant]

REACTIONS (6)
  - CRYING [None]
  - SYSTEMIC LUPUS ERYTHEMATOSUS [None]
  - ANXIETY [None]
  - PRODUCTIVE COUGH [None]
  - ARTHRALGIA [None]
  - MOOD ALTERED [None]
